FAERS Safety Report 5431525-8 (Version None)
Quarter: 2007Q3

REPORT INFORMATION
  Report Type: 
  Country: None (occurrence: None)
  Receive Date: 20070830
  Receipt Date: 20070829
  Transmission Date: 20080115
  Serious: Yes (Death)
  Sender: FDA-Public Use
  Company Number: CN-BAYER-200713696GDS

PATIENT
  Age: 46 Year
  Sex: Male

DRUGS (1)
  1. NEXAVAR [Suspect]
     Indication: HEPATIC NEOPLASM MALIGNANT
     Dosage: UNIT DOSE: 400 MG
     Route: 048
     Dates: start: 20070603, end: 20070613

REACTIONS (6)
  - DECREASED APPETITE [None]
  - HEPATIC NEOPLASM MALIGNANT [None]
  - INSOMNIA [None]
  - RASH [None]
  - SKIN EXFOLIATION [None]
  - SKIN REACTION [None]
